FAERS Safety Report 12892866 (Version 7)
Quarter: 2017Q2

REPORT INFORMATION
  Report Type: Spontaneous
  Country: US (occurrence: US)
  Receive Date: 20161028
  Receipt Date: 20170522
  Transmission Date: 20170830
  Serious: No
  Sender: FDA-Public Use
  Company Number: PHEH2016US028069

PATIENT
  Sex: Female
  Weight: 73.92 kg

DRUGS (2)
  1. ZOFRAN [Suspect]
     Active Substance: ONDANSETRON HYDROCHLORIDE
     Indication: PRODUCT USED FOR UNKNOWN INDICATION
     Route: 065
  2. ONDANSETRON [Suspect]
     Active Substance: ONDANSETRON
     Indication: VOMITING IN PREGNANCY
     Dosage: 8 MG, UNK
     Route: 065
     Dates: start: 20140715, end: 201409

REACTIONS (4)
  - Injury [Unknown]
  - Maternal exposure during pregnancy [Unknown]
  - Ovarian cyst [Unknown]
  - Product use issue [Unknown]
